FAERS Safety Report 7100017-2 (Version None)
Quarter: 2010Q4

REPORT INFORMATION
  Report Type: 
  Country: None (occurrence: None)
  Receive Date: 20101112
  Receipt Date: 20101109
  Transmission Date: 20110411
  Serious: Yes (Other)
  Sender: FDA-Public Use
  Company Number: PHHY2010CY21996

PATIENT
  Sex: Female
  Weight: 70 kg

DRUGS (1)
  1. GLEEVEC [Suspect]
     Dosage: 400 MG, DAILY

REACTIONS (2)
  - ABORTION SPONTANEOUS [None]
  - DRUG EXPOSURE BEFORE PREGNANCY [None]
